FAERS Safety Report 14851102 (Version 2)
Quarter: 2018Q2

REPORT INFORMATION
  Report Type: Report from Study
  Country: None (occurrence: US)
  Receive Date: 20180507
  Receipt Date: 20180523
  Transmission Date: 20180711
  Serious: Yes (Hospitalization, Other)
  Sender: FDA-Public Use
  Company Number: US-ABBVIE-18K-163-2343306-00

PATIENT
  Age: 45 Year
  Sex: Male
  Weight: 78.09 kg

DRUGS (1)
  1. HUMIRA [Suspect]
     Active Substance: ADALIMUMAB
     Indication: HIDRADENITIS
     Route: 058
     Dates: start: 2014, end: 20180502

REACTIONS (11)
  - Cyst [Recovered/Resolved]
  - Balance disorder [Unknown]
  - Arthritis [Recovered/Resolved]
  - Irritable bowel syndrome [Not Recovered/Not Resolved]
  - Spondylitis [Not Recovered/Not Resolved]
  - Rash [Not Recovered/Not Resolved]
  - Scoliosis [Recovered/Resolved]
  - Gait disturbance [Not Recovered/Not Resolved]
  - Intervertebral disc disorder [Not Recovered/Not Resolved]
  - Renal impairment [Not Recovered/Not Resolved]
  - Scoliosis [Not Recovered/Not Resolved]

NARRATIVE: CASE EVENT DATE: 2016
